FAERS Safety Report 6389516-9 (Version None)
Quarter: 2009Q4

REPORT INFORMATION
  Report Type: 
  Country: None (occurrence: None)
  Receive Date: 20091006
  Receipt Date: 20070427
  Transmission Date: 20100525
  Serious: Yes (Other)
  Sender: FDA-Public Use
  Company Number: US-ASTRAZENECA-2006UW22034

PATIENT
  Age: 16474 Day
  Sex: Female
  Weight: 92.1 kg

DRUGS (21)
  1. SEROQUEL [Suspect]
     Indication: BIPOLAR DISORDER
     Route: 048
     Dates: start: 20000804, end: 20060608
  2. SEROQUEL [Suspect]
     Indication: DEPRESSION
     Route: 048
     Dates: start: 20000804, end: 20060608
  3. SEROQUEL [Suspect]
     Dosage: 200-300 MG, HS
     Route: 048
     Dates: start: 20000804
  4. SEROQUEL [Suspect]
     Dosage: 200-300 MG, HS
     Route: 048
     Dates: start: 20000804
  5. CLOZARIL [Concomitant]
  6. RISPERDAL [Concomitant]
     Dosage: FOR APPROX 8 MONTHS
     Dates: start: 20000101, end: 20010101
  7. NEURONTIN [Concomitant]
     Dosage: 300 MG 3 CS HS
     Route: 048
     Dates: start: 20001110
  8. AMBIEN [Concomitant]
     Dosage: 10 MG 1 TABLET PO HS PRN
     Route: 048
     Dates: start: 20001120
  9. TEMAZEPAM [Concomitant]
     Indication: SLEEP DISORDER
     Route: 048
     Dates: start: 20001208
  10. PAXIL [Concomitant]
     Dosage: 20-40 MG
     Route: 048
     Dates: start: 20000804
  11. AVAPRO [Concomitant]
     Dates: start: 20050803
  12. ZOLOFT [Concomitant]
     Dates: start: 20050803
  13. GLUCOVANCE [Concomitant]
     Dosage: 2.5/500 MG BID
     Dates: start: 20050803
  14. CELEXA [Concomitant]
     Dates: start: 20020514
  15. DYAZIDE [Concomitant]
     Dates: start: 20020514
  16. GLUCOTROL [Concomitant]
     Dates: start: 20010420
  17. TENORMIN [Concomitant]
     Dates: start: 19990414
  18. DIFLUCAN [Concomitant]
     Dates: start: 19990519
  19. TIAZAC [Concomitant]
     Dates: start: 20000814
  20. DIOVAN [Concomitant]
     Dates: start: 20060607
  21. DOXEPIN HCL [Concomitant]
     Dates: start: 20060607

REACTIONS (9)
  - CHRONIC HEPATIC FAILURE [None]
  - DIABETES MELLITUS [None]
  - DIABETES MELLITUS INADEQUATE CONTROL [None]
  - HEPATIC CIRRHOSIS [None]
  - HEPATITIS C [None]
  - HEPATOSPLENOMEGALY [None]
  - LIVER DISORDER [None]
  - OBESITY [None]
  - TYPE 2 DIABETES MELLITUS [None]
